FAERS Safety Report 15713767 (Version 1)
Quarter: 2018Q4

REPORT INFORMATION
  Report Type: Spontaneous
  Country: US (occurrence: US)
  Receive Date: 20181212
  Receipt Date: 20181212
  Transmission Date: 20190205
  Serious: Yes (Other)
  Sender: FDA-Public Use
  Company Number: US-ASSERTIO THERAPEUTICS, INC.-US-2018DEP001938

PATIENT

DRUGS (1)
  1. GRALISE [Suspect]
     Active Substance: GABAPENTIN
     Indication: CHRONIC IDIOPATHIC PAIN SYNDROME
     Dosage: 1800 MG, QD
     Route: 048
     Dates: start: 20180516, end: 20181125

REACTIONS (6)
  - Feeling abnormal [Recovering/Resolving]
  - Product use in unapproved indication [Unknown]
  - Dyslexia [Recovering/Resolving]
  - Pain [Unknown]
  - Drug dose titration not performed [Unknown]
  - Anxiety [Unknown]

NARRATIVE: CASE EVENT DATE: 20180516
